FAERS Safety Report 18398810 (Version 1)
Quarter: 2020Q4

REPORT INFORMATION
  Report Type: Report from Study
  Country: IT (occurrence: IT)
  Receive Date: 20201019
  Receipt Date: 20201019
  Transmission Date: 20210114
  Serious: Yes (Hospitalization)
  Sender: FDA-Public Use
  Company Number: IT-TEVA-2020-IT-1838873

PATIENT
  Age: 93 Year
  Sex: Female

DRUGS (8)
  1. CARDIOASPIRIN 100 MG COMPRESSE GASTRORESISTENTI [Suspect]
     Active Substance: ASPIRIN
     Indication: CARDIOVASCULAR EVENT PROPHYLAXIS
     Route: 065
     Dates: start: 20200101, end: 20200805
  2. CLOPIDOGREL HYDROGEN SULFATE [Suspect]
     Active Substance: CLOPIDOGREL BISULFATE
     Indication: CARDIOVASCULAR EVENT PROPHYLAXIS
     Route: 065
     Dates: start: 20200101, end: 20200805
  3. NORVASC [Concomitant]
     Active Substance: AMLODIPINE BESYLATE
     Dosage: 1 DOSAGE FORMS
     Dates: start: 20200101, end: 20200803
  4. CLEXANE [Suspect]
     Active Substance: ENOXAPARIN SODIUM
     Indication: CARDIOVASCULAR EVENT PROPHYLAXIS
     Route: 065
     Dates: start: 20200101, end: 20200805
  5. TARGIN 5 MG/2,5MG COMPRESSE A RILASCIO PROLUNGATO [Concomitant]
     Active Substance: NALOXONE HYDROCHLORIDE\OXYCODONE HYDROCHLORIDE
     Dosage: 1 DOSAGE FORMS
  6. RAMIPRIL. [Concomitant]
     Active Substance: RAMIPRIL
     Dosage: 5 MG
  7. GABAPENTIN. [Concomitant]
     Active Substance: GABAPENTIN
     Dosage: 700 MG
  8. PANTOPRAZOLE SODIUM SESQUIHYDRATE [Concomitant]
     Active Substance: PANTOPRAZOLE SODIUM
     Dosage: 20 MG

REACTIONS (1)
  - Anaemia [Not Recovered/Not Resolved]

NARRATIVE: CASE EVENT DATE: 20200805
